FAERS Safety Report 5581848-7 (Version None)
Quarter: 2008Q1

REPORT INFORMATION
  Report Type: 
  Country: None (occurrence: None)
  Receive Date: 20080104
  Receipt Date: 20071207
  Transmission Date: 20080703
  Serious: No
  Sender: FDA-Public Use
  Company Number: US-BAYER-200712421BCC

PATIENT
  Sex: Female
  Weight: 63 kg

DRUGS (8)
  1. ALEVE [Suspect]
     Indication: MYALGIA
     Dosage: TOTAL DAILY DOSE: 440 MG  UNIT DOSE: 220 MG
     Route: 048
  2. EFFEXOR [Concomitant]
  3. KIRKLAND 81 MG ASPIRIN [Concomitant]
  4. KIRKLAND MULTI-VITAMIN [Concomitant]
  5. IMIPRAMINE [Concomitant]
  6. DIOVAN [Concomitant]
  7. KLONOPIN [Concomitant]
  8. SIMVASTATIN [Concomitant]

REACTIONS (2)
  - FEELING HOT [None]
  - HYPERHIDROSIS [None]
